FAERS Safety Report 10427941 (Version 1)
Quarter: 2014Q3

REPORT INFORMATION
  Report Type: Spontaneous
  Country: US (occurrence: None)
  Receive Date: 20140725
  Receipt Date: 20140725
  Transmission Date: 20150326
  Serious: No
  Sender: FDA-Public Use
  Company Number: AP356-00785-SPO-US

PATIENT
  Age: 59 Year
  Sex: Female
  Weight: 137 kg

DRUGS (3)
  1. MAXALT [Concomitant]
     Active Substance: RIZATRIPTAN BENZOATE
  2. ASPIRIN (ACETYLSALICYLIC ACID) [Concomitant]
     Active Substance: ASPIRIN
  3. BELVIQ [Suspect]
     Active Substance: LORCASERIN HYDROCHLORIDE
     Indication: OBESITY
     Dosage: 1 IN  1 D
     Route: 048
     Dates: start: 20140516, end: 20140520

REACTIONS (1)
  - Migraine [None]

NARRATIVE: CASE EVENT DATE: 20140516
